FAERS Safety Report 23166761 (Version 3)
Quarter: 2024Q1

REPORT INFORMATION
  Report Type: Spontaneous
  Country: IT (occurrence: IT)
  Receive Date: 20231109
  Receipt Date: 20240104
  Transmission Date: 20240410
  Serious: Yes (Hospitalization)
  Sender: FDA-Public Use
  Company Number: None

PATIENT
  Age: 32 Year
  Sex: Female

DRUGS (3)
  1. MEROPENEM [Suspect]
     Active Substance: MEROPENEM
     Indication: Infection
     Dosage: 2 G, 3X/DAY (2G X3/DIE IV)
     Route: 042
     Dates: start: 20231014, end: 20231018
  2. LINEZOLID [Suspect]
     Active Substance: LINEZOLID
     Indication: Infection
     Dosage: 600 MG, 2X/DAY (EVERY12 HOURS)
     Route: 042
     Dates: start: 20231016, end: 20231018
  3. VANCOMYCIN HYDROCHLORIDE [Suspect]
     Active Substance: VANCOMYCIN HYDROCHLORIDE
     Dosage: 600 MG EVERY 12 HOURS IV
     Route: 042
     Dates: start: 20231014, end: 20231016

REACTIONS (3)
  - Gastrointestinal disorder [Recovered/Resolved]
  - Dermatitis allergic [Recovered/Resolved]
  - Neck pain [Recovered/Resolved]

NARRATIVE: CASE EVENT DATE: 20231018
